FAERS Safety Report 8066384-0 (Version None)
Quarter: 2012Q1

REPORT INFORMATION
  Report Type: 
  Country: None (occurrence: None)
  Receive Date: 20120124
  Receipt Date: 20120124
  Transmission Date: 20120608
  Serious: Yes (Hospitalization)
  Sender: FDA-Public Use
  Company Number: None

PATIENT
  Age: 49 Year
  Sex: Female
  Weight: 78.471 kg

DRUGS (2)
  1. LEVAQUIN [Suspect]
     Indication: POST PROCEDURAL INFECTION
     Dosage: 1 TABLET
     Route: 048
     Dates: start: 20111223, end: 20111230
  2. LEVAQUIN [Suspect]
     Indication: PROPHYLAXIS
     Dosage: 1 TABLET
     Route: 048
     Dates: start: 20111223, end: 20111230

REACTIONS (4)
  - DIARRHOEA [None]
  - PROCTALGIA [None]
  - DEFAECATION URGENCY [None]
  - FREQUENT BOWEL MOVEMENTS [None]
